FAERS Safety Report 25385717 (Version 1)
Quarter: 2025Q2

REPORT INFORMATION
  Report Type: Spontaneous
  Country: US (occurrence: US)
  Receive Date: 20250602
  Receipt Date: 20250602
  Transmission Date: 20250716
  Serious: No
  Sender: CHATTEM
  Company Number: US-OPELLA-2025OHG016937

PATIENT
  Sex: Female

DRUGS (1)
  1. ALLEGRA-D 24 HOUR [Suspect]
     Active Substance: FEXOFENADINE HYDROCHLORIDE\PSEUDOEPHEDRINE HYDROCHLORIDE
     Indication: Hypersensitivity
     Dosage: ALLEGRA D FOR (2) NIGHTS IN A ROW??STRENGTH - 180 MG+240 MG

REACTIONS (2)
  - Dyspnoea [Unknown]
  - Adverse drug reaction [Unknown]
